FAERS Safety Report 17608406 (Version 2)
Quarter: 2020Q2

REPORT INFORMATION
  Report Type: Spontaneous
  Country: JP (occurrence: JP)
  Receive Date: 20200331
  Receipt Date: 20200625
  Transmission Date: 20200713
  Serious: Yes (Other)
  Sender: FDA-Public Use
  Company Number: JP-BAXTER-2020BAX007038

PATIENT
  Age: 79 Year
  Sex: Male

DRUGS (1)
  1. DOXIL [Suspect]
     Active Substance: DOXORUBICIN HYDROCHLORIDE
     Indication: MYXOFIBROSARCOMA
     Dosage: 20 MG
     Route: 041

REACTIONS (1)
  - Arrhythmia [Unknown]
